FAERS Safety Report 8637872 (Version 2)
Quarter: 2013Q1

REPORT INFORMATION
  Report Type: Spontaneous
  Country: US (occurrence: None)
  Receive Date: 20120323
  Receipt Date: 20130305
  Transmission Date: 20140127
  Serious: Yes (Other)
  Sender: FDA-Public Use
  Company Number: 163-21880-11110163

PATIENT
  Age: 72 Year
  Sex: Female
  Weight: 48.08 kg

DRUGS (2)
  1. REVLIMID (LENALIDOMIDE) (25 MILLIGRAM, CAPSULES) [Suspect]
     Indication: PLASMA CELL MYELOMA
     Dosage: 25 MG, DAY 1-21, PO
     Route: 048
     Dates: start: 20110713
  2. ASA (ACETYLSALICYLIC ACID) [Concomitant]

REACTIONS (2)
  - THROMBOSIS [None]
  - Deep vein thrombosis [None]
